FAERS Safety Report 19778350 (Version 1)
Quarter: 2021Q3

REPORT INFORMATION
  Report Type: Spontaneous
  Country: US (occurrence: US)
  Receive Date: 20210902
  Receipt Date: 20210902
  Transmission Date: 20211014
  Serious: No
  Sender: FDA-Public Use
  Company Number: US-MYLANLABS-2021M1053283

PATIENT
  Sex: Female

DRUGS (1)
  1. FENOFIBRATE TABLETS, USP [Suspect]
     Active Substance: FENOFIBRATE
     Indication: COVID-19
     Dosage: 145 MILLIGRAM
     Route: 048

REACTIONS (1)
  - Off label use [Unknown]
